FAERS Safety Report 9160361 (Version 1)
Quarter: 2013Q1

REPORT INFORMATION
  Report Type: Spontaneous
  Country: FR (occurrence: None)
  Receive Date: 20130219
  Receipt Date: 20130219
  Transmission Date: 20140127
  Serious: Yes (Disabling)
  Sender: FDA-Public Use
  Company Number: SYM-2013-00584

PATIENT
  Age: 40 Year
  Sex: Male

DRUGS (18)
  1. FLAGYL (METRONIDAZOLE) (UNKNOWN) (METRONIDAZOLE) [Suspect]
     Indication: INFECTION
     Dates: start: 201009, end: 201207
  2. OROKEN (CEFIXIME) (CEFIXIME) [Concomitant]
  3. AUGMENTIN (AUGMENTIN) [Concomitant]
  4. MODOPAR (MADOPAR) (UNKNOWN) (LEVODOPA, BENSERAZIDE HYDROCHLORIDE) [Concomitant]
  5. MORPHINE SULFATE(MORPHINE SULFATE) (UNKNOWN) (MORPHINE SULFATE) [Concomitant]
  6. ATARAX (HYDROXYZINE) (UNKNOWN) (HYDROXYZINE) [Concomitant]
  7. BIPERIDEN HYDROCHLORIDE (BIPERIDEN HYDROCHLORIDE) (UNKNOWN) (BIPERIDEN HYDROCHLORIDE) [Concomitant]
  8. SPASFON (SPASFON) (UNKNOWN) (PHLOROGLUCINOL, TRIMETHYPHLOROGLUCINOL) [Concomitant]
  9. LAMALINE (LAMALINE) (UNKNOWN) (CAFFEINE, PARACETAMOL, ATROPA BELLADONNA EXTRACT, PAPAVER SOMNIFERUM TINCTURE) [Concomitant]
  10. MOTILIUM (DOMPERIDONE) (UNKNOWN) (DOMPERIDONE) [Concomitant]
  11. NEURONTIN (GABAPENTIN) (UNKNOWN) (GABAPENTIN) [Concomitant]
  12. TENORMINE (ATENOLOL) (UNKNOWN) (ATENOLOL) [Concomitant]
  13. SPECIAFOLDINE (FOLIC ACID) (UNKNOWN) (FOLIC ACID) [Concomitant]
  14. LEVOTHYROX (LEVOTHYROXINE SODIUM) (UNKNOWN) (LEVOTHYROXINE SODIUM) [Concomitant]
  15. MOBIC (MELOXICAM) (UNKNOWN) (MELOXICAM) [Concomitant]
  16. OMEPRAZOLE (OMEPRAZOLE) (UNKNOWN) (OMEPRAZOLE) [Concomitant]
  17. DAIVONEX (CALCIPOTRIOL) (UNKNOWN) (CALCIPOTRIOL) [Concomitant]
  18. ELUDRIL (ELUDRIL) (UNKNOWN) (TETRACAINE HYDROCHLORIDE, CHLORHEXIDINE GLUCONATE) [Concomitant]

REACTIONS (5)
  - Neuropathy peripheral [None]
  - Fall [None]
  - Balance disorder [None]
  - Sjogren^s syndrome [None]
  - Feeling cold [None]
